FAERS Safety Report 18908751 (Version 1)
Quarter: 2021Q1

REPORT INFORMATION
  Report Type: Spontaneous
  Country: DE (occurrence: DE)
  Receive Date: 20210218
  Receipt Date: 20210218
  Transmission Date: 20210420
  Serious: Yes (Life-Threatening, Hospitalization, Other)
  Sender: FDA-Public Use
  Company Number: DE-JNJFOC-20210227793

PATIENT
  Age: 60 Year
  Sex: Female

DRUGS (2)
  1. DUROGESIC SMAT [Suspect]
     Active Substance: FENTANYL
     Indication: PAIN
  2. DUROGESIC SMAT [Suspect]
     Active Substance: FENTANYL
     Indication: OSTEOARTHRITIS
     Dosage: 75 UG/HOUR
     Route: 062

REACTIONS (4)
  - Hyperaesthesia [Unknown]
  - Coma [Unknown]
  - Product dispensing error [Unknown]
  - Overdose [Unknown]
